FAERS Safety Report 7119186-3 (Version None)
Quarter: 2010Q4

REPORT INFORMATION
  Report Type: 
  Country: None (occurrence: None)
  Receive Date: 20101123
  Receipt Date: 20101118
  Transmission Date: 20110411
  Serious: Yes (Other)
  Sender: FDA-Public Use
  Company Number: BR-ROCHE-725103

PATIENT
  Sex: Female
  Weight: 62 kg

DRUGS (4)
  1. AVASTIN [Suspect]
     Indication: LUNG ADENOCARCINOMA
     Route: 065
     Dates: end: 20100101
  2. TARCEVA [Suspect]
     Indication: LUNG ADENOCARCINOMA
     Route: 048
     Dates: start: 20100309
  3. CARBOPLATIN [Concomitant]
     Indication: LUNG ADENOCARCINOMA
     Dates: end: 20100105
  4. ALIMTA [Concomitant]
     Indication: LUNG ADENOCARCINOMA
     Dates: end: 20100105

REACTIONS (2)
  - ALOPECIA [None]
  - MALIGNANT NEOPLASM PROGRESSION [None]
